FAERS Safety Report 8854793 (Version 2)
Quarter: 2012Q4

REPORT INFORMATION
  Report Type: 
  Country: NL (occurrence: NL)
  Receive Date: 20121023
  Receipt Date: 20121112
  Transmission Date: 20130627
  Serious: Yes (Hospitalization)
  Sender: FDA-Public Use
  Company Number: NL-MYLANLABS-2012S1021105

PATIENT
  Age: 47 Year
  Sex: Female

DRUGS (2)
  1. TERBINAFINE [Suspect]
     Indication: ONYCHOMYCOSIS
     Dosage: 1dd250mg
     Route: 048
     Dates: start: 20120815, end: 20120911
  2. DICLOFENAC [Concomitant]
     Indication: PRODUCT USED FOR UNKNOWN INDICATION
     Route: 048

REACTIONS (5)
  - Thrombotic thrombocytopenic purpura [Recovering/Resolving]
  - Haemolytic uraemic syndrome [Recovering/Resolving]
  - Gastritis haemorrhagic [Recovering/Resolving]
  - Headache [Unknown]
  - Ovarian cyst [Unknown]
